FAERS Safety Report 5563722-5 (Version None)
Quarter: 2007Q4

REPORT INFORMATION
  Report Type: 
  Country: None (occurrence: None)
  Receive Date: 20071217
  Receipt Date: 20070809
  Transmission Date: 20080405
  Serious: No
  Sender: FDA-Public Use
  Company Number: US-ASTRAZENECA-2007UW19238

PATIENT
  Age: 70 Year
  Sex: Female
  Weight: 72.6 kg

DRUGS (6)
  1. CRESTOR [Suspect]
     Route: 048
  2. WELLBUTRIN [Concomitant]
  3. LAMICAID [Concomitant]
  4. ENABLEX [Concomitant]
  5. VALTREX [Concomitant]
  6. MV [Concomitant]

REACTIONS (3)
  - FATIGUE [None]
  - MYALGIA [None]
  - NIGHT SWEATS [None]
